FAERS Safety Report 9697882 (Version 2)
Quarter: 2013Q4

REPORT INFORMATION
  Report Type: Spontaneous
  Country: BR (occurrence: BR)
  Receive Date: 20131120
  Receipt Date: 20131203
  Transmission Date: 20140711
  Serious: Yes (Death, Other)
  Sender: FDA-Public Use
  Company Number: BR-ACTELION-A-CH2013-91430

PATIENT
  Age: 2 Year
  Sex: Male

DRUGS (4)
  1. ZAVESCA [Suspect]
     Indication: LIPIDOSIS
     Dosage: 100 MG, TID
     Route: 048
     Dates: start: 2012, end: 20131109
  2. LAMOTRIGINE [Concomitant]
     Dosage: UNK
     Dates: start: 2012
  3. TOPIRAMATE [Concomitant]
     Dosage: UNK
     Dates: start: 2012
  4. OXCARBAZEPINE [Concomitant]
     Dosage: UNK
     Dates: start: 2012

REACTIONS (6)
  - Lipidosis [Fatal]
  - Disease progression [Fatal]
  - Pneumonia [Unknown]
  - Upper respiratory tract infection [Unknown]
  - Neurological decompensation [Fatal]
  - Blood disorder [Fatal]
